FAERS Safety Report 18837417 (Version 3)
Quarter: 2021Q3

REPORT INFORMATION
  Report Type: Spontaneous
  Country: JP (occurrence: JP)
  Receive Date: 20210203
  Receipt Date: 20210714
  Transmission Date: 20211014
  Serious: Yes (Other)
  Sender: FDA-Public Use
  Company Number: JP-JNJFOC-20210204566

PATIENT
  Age: 19 Year
  Sex: Male

DRUGS (12)
  1. MESALAZINE [Suspect]
     Active Substance: MESALAMINE
     Dosage: 2000 MILLIGRAM, QD?DRUG START PERIOD 842  (DAYS)
     Route: 048
     Dates: start: 20200528
  2. PREDNISOLONE. [Concomitant]
     Active Substance: PREDNISOLONE
     Indication: CROHN^S DISEASE
     Dosage: 2 MILLIGRAM, QD
     Route: 048
     Dates: start: 20170816
  3. BAKTAR [Concomitant]
     Active Substance: SULFAMETHOXAZOLE\TRIMETHOPRIM
     Dosage: UNK, QD?DRUG START PERIOD 724  (DAYS)?DRUG LAST PERIOD 718 (DAYS)
     Route: 048
     Dates: start: 20171212, end: 20171218
  4. PREDNISOLONE. [Concomitant]
     Active Substance: PREDNISOLONE
     Dosage: UNK
     Route: 048
  5. BILANOA [Concomitant]
     Active Substance: BILASTINE
     Indication: CROHN^S DISEASE
     Dosage: 20 MILLIGRAM, QD?DRUG START PERIOD 288  (DAYS)
     Route: 048
     Dates: start: 20190221
  6. IMURAN [Concomitant]
     Active Substance: AZATHIOPRINE
     Indication: CROHN^S DISEASE
     Dosage: 100 MILLIGRAM, BID?DRUG START PERIOD 724  (DAYS)?DRUG LAST PERIOD 718 (DAYS)
     Route: 048
     Dates: start: 20171212, end: 20171218
  7. REMICADE [Suspect]
     Active Substance: INFLIXIMAB
     Indication: CROHN^S DISEASE
     Dosage: DRUG START PERIOD 498  (DAYS)?DRUG LAST PERIOD 57 (DAYS)? DURATION OF DRUG ADMIN.9DAYS
     Route: 042
     Dates: start: 20180726, end: 20190814
  8. REMICADE [Suspect]
     Active Substance: INFLIXIMAB
     Dosage: DRUG START PERIOD 498  (DAYS)?DRUG LAST PERIOD 57 (DAYS)? DURATION OF DRUG ADMIN.1 DAYS
     Route: 042
     Dates: start: 20191010, end: 20191010
  9. REMICADE [Suspect]
     Active Substance: INFLIXIMAB
     Dosage: DRUG START PERIOD 498  (DAYS)?DRUG LAST PERIOD 57 (DAYS)?DRUG CUMULATIVE DOSAGE 2400 MG
     Route: 042
  10. MESALAZINE [Suspect]
     Active Substance: MESALAMINE
     Indication: CROHN^S DISEASE
     Dosage: 1000 MILLIGRAM, QID?DRUG START PERIOD 842  (DAYS)
     Route: 048
     Dates: start: 20170816
  11. ELENTAL [Concomitant]
     Active Substance: AMINO ACIDS\CARBOHYDRATES\MINERALS\SOYBEAN OIL\VITAMINS
     Indication: CROHN^S DISEASE
     Dosage: 80 GRAM, QD? DRUG START PERIOD 842  (DAYS)
     Route: 048
     Dates: start: 20170816
  12. RISEDORON [Concomitant]
     Indication: OSTEOPOROSIS PROPHYLAXIS
     Dosage: 17.5 MILLIGRAM, QD?DRUG START PERIOD 724  (DAYS)
     Route: 048
     Dates: start: 20171212

REACTIONS (1)
  - Tubulointerstitial nephritis [Not Recovered/Not Resolved]

NARRATIVE: CASE EVENT DATE: 20191205
